FAERS Safety Report 10254759 (Version 3)
Quarter: 2018Q1

REPORT INFORMATION
  Report Type: Report from Study
  Country: US (occurrence: US)
  Receive Date: 20140624
  Receipt Date: 20180217
  Transmission Date: 20180508
  Serious: Yes (Other)
  Sender: FDA-Public Use
  Company Number: US-ROCHE-1389842

PATIENT
  Sex: Male
  Weight: 52.4 kg

DRUGS (6)
  1. NUTROPIN AQ [Suspect]
     Active Substance: SOMATROPIN
     Indication: GROWTH HORMONE DEFICIENCY
     Route: 058
  2. NUTROPIN AQ [Suspect]
     Active Substance: SOMATROPIN
     Dosage: 6 DAYS PER WEEK
     Route: 058
  3. ADDERALL [Concomitant]
     Active Substance: AMPHETAMINE ASPARTATE\AMPHETAMINE SULFATE\DEXTROAMPHETAMINE SACCHARATE\DEXTROAMPHETAMINE SULFATE
     Route: 048
  4. ECONAZOLE [Concomitant]
     Active Substance: ECONAZOLE
     Route: 061
  5. CLONIDINE. [Concomitant]
     Active Substance: CLONIDINE
     Route: 065
  6. NUTROPIN AQ [Suspect]
     Active Substance: SOMATROPIN
     Dosage: 6 DAYS/WEEK
     Route: 058

REACTIONS (5)
  - Growth retardation [Unknown]
  - Gastroenteritis viral [Unknown]
  - Alanine aminotransferase decreased [Unknown]
  - Fungal skin infection [Unknown]
  - Blood glucose increased [Unknown]
